FAERS Safety Report 10201286 (Version 1)
Quarter: 2014Q2

REPORT INFORMATION
  Report Type: Spontaneous
  Country: BR (occurrence: BR)
  Receive Date: 20140528
  Receipt Date: 20140528
  Transmission Date: 20141212
  Serious: Yes (Hospitalization, Other)
  Sender: FDA-Public Use
  Company Number: BR-PFIZER INC-2014143179

PATIENT
  Age: 77 Year
  Sex: Male
  Weight: 70 kg

DRUGS (6)
  1. XALATAN [Suspect]
     Indication: GLAUCOMA
     Dosage: UNK
     Dates: start: 2004
  2. CALCIUM CARBONATE [Concomitant]
     Indication: BONE DISORDER
     Dosage: 1 TABLET OF STRENGTH 500 MG, 2X/DAY
     Dates: start: 201312
  3. RIVOTRIL [Concomitant]
     Indication: SLEEP DISORDER
     Dosage: 8 DROPS AT NIGHT
  4. EXELON [Concomitant]
     Indication: PARKINSON^S DISEASE
     Dosage: 1 TABLET OF STRENGTH 3 MG, 2X/DAY
     Dates: start: 2004
  5. PROLOPA [Concomitant]
     Indication: PARKINSON^S DISEASE
     Dosage: [BENSERAZIDE HYDROCHLORIDE 25MG] / [LEVODOPA 100MG], (HALF OF 50 / 200MG UNIT), 4X/DAY
     Dates: start: 1996
  6. ALOES [Concomitant]
     Indication: PARKINSON^S DISEASE
     Dosage: 15MG (ONE AND A HALF UNIT OF 10MG), 2X/DAY
     Dates: start: 2009

REACTIONS (3)
  - Eschar [Unknown]
  - Wound necrosis [Unknown]
  - Wound infection [Unknown]
